FAERS Safety Report 10916988 (Version 3)
Quarter: 2016Q2

REPORT INFORMATION
  Report Type: Spontaneous
  Country: US (occurrence: US)
  Receive Date: 20150316
  Receipt Date: 20160504
  Transmission Date: 20160815
  Serious: Yes (Disabling, Other)
  Sender: FDA-Public Use
  Company Number: US-JNJFOC-20140405721

PATIENT
  Age: 59 Year
  Sex: Male
  Weight: 104.33 kg

DRUGS (7)
  1. ASPIRIN. [Concomitant]
     Active Substance: ASPIRIN
     Indication: BLOOD PRESSURE MEASUREMENT
     Route: 065
  2. METHADONE [Concomitant]
     Active Substance: METHADONE HYDROCHLORIDE
     Indication: RENAL TUBULAR NECROSIS
     Route: 065
     Dates: start: 201301, end: 201403
  3. ZOLADEX [Concomitant]
     Active Substance: GOSERELIN ACETATE
     Indication: PROSTATE CANCER
     Route: 065
     Dates: start: 20081127
  4. RANITIDINE. [Concomitant]
     Active Substance: RANITIDINE
     Indication: FLATULENCE
     Route: 065
  5. PREDNISONE. [Concomitant]
     Active Substance: PREDNISONE
     Indication: PROSTATE CANCER
     Route: 048
     Dates: start: 20130424, end: 20140305
  6. ZYTIGA [Suspect]
     Active Substance: ABIRATERONE ACETATE
     Indication: PROSTATE CANCER
     Route: 048
     Dates: start: 20130424, end: 20140305
  7. VITAMIN C AND D [Concomitant]
     Indication: PROSTATE CANCER STAGE IV
     Route: 065

REACTIONS (14)
  - Cough [Unknown]
  - Abdominal distension [Unknown]
  - Hypertension [Unknown]
  - Diarrhoea [Unknown]
  - Prostatic specific antigen increased [Unknown]
  - Drug prescribing error [Unknown]
  - Recurrent cancer [Not Recovered/Not Resolved]
  - Urinary tract infection [Unknown]
  - Vomiting [Unknown]
  - Abdominal pain upper [Unknown]
  - Confusional state [Unknown]
  - Headache [Unknown]
  - Hot flush [Unknown]
  - Drug ineffective [Not Recovered/Not Resolved]

NARRATIVE: CASE EVENT DATE: 20130902
